FAERS Safety Report 5444983-X (Version None)
Quarter: 2007Q3

REPORT INFORMATION
  Report Type: 
  Country: None (occurrence: None)
  Receive Date: 20070904
  Receipt Date: 20070904
  Transmission Date: 20080115
  Serious: Yes (Life-Threatening, Hospitalization)
  Sender: FDA-Public Use
  Company Number: None

PATIENT
  Age: 85 Year
  Sex: Female
  Weight: 76.8 kg

DRUGS (10)
  1. HEPARIN [Suspect]
     Indication: CEREBROVASCULAR ACCIDENT
     Dosage: CONTINUOUS IV DRIP
     Route: 042
     Dates: start: 20070727, end: 20070731
  2. HEPARIN [Suspect]
     Indication: TRANSIENT ISCHAEMIC ATTACK
     Dosage: CONTINUOUS IV DRIP
     Route: 042
     Dates: start: 20070727, end: 20070731
  3. ENALAORILAT [Concomitant]
  4. INSULIN ASPART [Concomitant]
  5. INSULIN REGULAT SLIDING SCALE [Concomitant]
  6. CIPROFLOXACIN [Concomitant]
  7. FUROSEMIDE [Concomitant]
  8. METOPROLOL SUCCINATE [Concomitant]
  9. LABETALOL HCL [Concomitant]
  10. PANTOPRAZOLE SODIUM [Concomitant]

REACTIONS (3)
  - HAEMATOMA [None]
  - HAEMATURIA [None]
  - HEADACHE [None]
